FAERS Safety Report 8172897-3 (Version None)
Quarter: 2012Q1

REPORT INFORMATION
  Report Type: 
  Country: None (occurrence: None)
  Receive Date: 20120223
  Receipt Date: 20120210
  Transmission Date: 20120608
  Serious: Yes (Other)
  Sender: FDA-Public Use
  Company Number: 1000028552

PATIENT
  Age: 25 Year
  Sex: Female

DRUGS (2)
  1. XANAX [Concomitant]
  2. ESCITALOPRAM OXALATE [Suspect]
     Dosage: 5 MG, 1 IN 1 D),ORAL
     Route: 048
     Dates: start: 20111026

REACTIONS (3)
  - PHOTOSENSITIVITY REACTION [None]
  - PURPURA [None]
  - LYMPHANGITIS [None]
